FAERS Safety Report 13505243 (Version 2)
Quarter: 2017Q2

REPORT INFORMATION
  Report Type: Spontaneous
  Country: US (occurrence: US)
  Receive Date: 20170502
  Receipt Date: 20170503
  Transmission Date: 20170830
  Serious: No
  Sender: FDA-Public Use
  Company Number: US-BAYER-2017-082822

PATIENT
  Age: 61 Year

DRUGS (3)
  1. ESTRADIOL. [Suspect]
     Active Substance: ESTRADIOL
     Dosage: 0.1 MG
     Route: 062
     Dates: start: 20160916
  2. FINASTERIDE. [Concomitant]
     Active Substance: FINASTERIDE
  3. PROGESTERONE. [Concomitant]
     Active Substance: PROGESTERONE

REACTIONS (4)
  - Application site rash [Unknown]
  - Application site pruritus [None]
  - Application site hypersensitivity [None]
  - Device material issue [None]

NARRATIVE: CASE EVENT DATE: 201701
